FAERS Safety Report 20268442 (Version 2)
Quarter: 2022Q1

REPORT INFORMATION
  Report Type: Report from Study
  Country: CA (occurrence: CA)
  Receive Date: 20211231
  Receipt Date: 20220211
  Transmission Date: 20220423
  Serious: Yes (Death, Other)
  Sender: FDA-Public Use
  Company Number: CA-BAYER-2021A276266

PATIENT

DRUGS (2)
  1. EYLEA [Suspect]
     Active Substance: AFLIBERCEPT
     Indication: Neovascular age-related macular degeneration
     Dosage: RIGHT EYE
     Route: 031
     Dates: start: 20160426
  2. EYLEA [Suspect]
     Active Substance: AFLIBERCEPT
     Dosage: BOTH EYES BEING TREATED
     Route: 031
     Dates: end: 20210107

REACTIONS (1)
  - Death [Fatal]

NARRATIVE: CASE EVENT DATE: 20210122
